FAERS Safety Report 8481323-6 (Version None)
Quarter: 2012Q3

REPORT INFORMATION
  Report Type: 
  Country: None (occurrence: None)
  Receive Date: 20120702
  Receipt Date: 20120622
  Transmission Date: 20120928
  Serious: Yes (Hospitalization)
  Sender: FDA-Public Use
  Company Number: JP-JNJFOC-20120305353

PATIENT
  Sex: Male
  Weight: 44 kg

DRUGS (5)
  1. ALLEGRA [Concomitant]
     Route: 048
  2. ISONIAZID [Concomitant]
     Route: 048
  3. REMICADE [Suspect]
     Dosage: 3RD DOSE
     Route: 042
     Dates: start: 20110804
  4. ARICEPT ODT [Concomitant]
     Route: 048
  5. REMICADE [Suspect]
     Indication: ERYTHRODERMIC PSORIASIS
     Route: 042
     Dates: start: 20110623

REACTIONS (1)
  - POLYMYOSITIS [None]
